FAERS Safety Report 11209164 (Version 1)
Quarter: 2015Q2

REPORT INFORMATION
  Report Type: Spontaneous
  Country: US (occurrence: US)
  Receive Date: 20150622
  Receipt Date: 20150622
  Transmission Date: 20150821
  Serious: Yes (Death, Other)
  Sender: FDA-Public Use
  Company Number: PHHY2015US070418

PATIENT
  Age: 51 Year
  Sex: Female

DRUGS (11)
  1. IRINOTECAN [Suspect]
     Active Substance: IRINOTECAN
     Indication: METASTASIS
     Dosage: 125 MG/M2, QW2
     Route: 065
  2. PACLITAX NAB [Suspect]
     Active Substance: PACLITAXEL
     Indication: BREAST CANCER
     Dosage: 175 MG/M2,FOR 4 CYCLES
     Route: 065
     Dates: start: 201003, end: 201007
  3. PACLITAX NAB [Suspect]
     Active Substance: PACLITAXEL
     Dosage: 90 MG/M2, QW(FOR 3WEEKS IN A 4-WEEK CYCLE
     Route: 065
     Dates: start: 201208
  4. CYCLOPHOSPHAMIDE. [Suspect]
     Active Substance: CYCLOPHOSPHAMIDE
     Indication: BREAST CANCER
     Dosage: 600 MG/M2, QW2(FOR 4 CYCLES)
     Route: 065
  5. PACLITAXEL. [Suspect]
     Active Substance: PACLITAXEL
     Indication: BREAST CANCER
     Dosage: 175 MG/M2, 4 CYCLE
     Route: 065
  6. TEMOZOLOMIDE. [Suspect]
     Active Substance: TEMOZOLOMIDE
     Indication: METASTASIS
     Dosage: 100 MG/M2, QD(ON DAYS 1?7 AND 15?21 OF EACH 28-DAY CYCLE)
     Route: 065
  7. CARBOPLATIN. [Suspect]
     Active Substance: CARBOPLATIN
     Dosage: 450 MG, QW3(FOR 3 WEEKS IN A 4-WEEK CYCLE)
     Route: 065
     Dates: start: 20120612
  8. ETOPOSIDE. [Suspect]
     Active Substance: ETOPOSIDE
     Indication: BREAST CANCER
     Dosage: 4 CYCLES
     Route: 065
  9. DOXORUBICIN [Suspect]
     Active Substance: DOXORUBICIN
     Indication: BREAST CANCER
     Dosage: 60 MG/M2, QW2(FOR 4 CYCLES)
     Route: 065
  10. PACLITAX NAB [Suspect]
     Active Substance: PACLITAXEL
     Dosage: 100 MG/M2, QW(FOR 3 WEEKS IN A 4-WEEK CYCLE)
     Route: 065
     Dates: start: 20120612
  11. CARBOPLATIN. [Suspect]
     Active Substance: CARBOPLATIN
     Indication: BREAST CANCER
     Dosage: 4 CYCLES
     Route: 065

REACTIONS (7)
  - Body mass index decreased [Unknown]
  - Condition aggravated [Fatal]
  - Neutropenia [Unknown]
  - Disease recurrence [Unknown]
  - Aphasia [Unknown]
  - Abdominal pain [Unknown]
  - Dyspnoea [Unknown]

NARRATIVE: CASE EVENT DATE: 201203
